FAERS Safety Report 22599829 (Version 1)
Quarter: 2023Q2

REPORT INFORMATION
  Report Type: Spontaneous
  Country: US (occurrence: US)
  Receive Date: 20230614
  Receipt Date: 20230614
  Transmission Date: 20230721
  Serious: No
  Sender: FDA-Public Use
  Company Number: US-SA-SAC20230613001193

PATIENT
  Sex: Female

DRUGS (12)
  1. DUPIXENT [Suspect]
     Active Substance: DUPILUMAB
     Indication: Asthma
     Dosage: 300 MG, QOW
     Route: 058
     Dates: start: 20221027
  2. ALBUTEROL [Concomitant]
     Active Substance: ALBUTEROL
  3. APAP;CODEINE [Concomitant]
  4. AZITHROMYCIN [Concomitant]
     Active Substance: AZITHROMYCIN
  5. IBUPROFEN [Concomitant]
     Active Substance: IBUPROFEN
  6. METOPROLOL [Concomitant]
     Active Substance: METOPROLOL
  7. NICOTINE [Concomitant]
     Active Substance: NICOTINE
     Dosage: UNK UNK, QD
  8. PANTOPRAZOLE [Concomitant]
     Active Substance: PANTOPRAZOLE
  9. PREDNISONE [Concomitant]
     Active Substance: PREDNISONE
  10. PROAIR HFA [Concomitant]
     Active Substance: ALBUTEROL SULFATE
  11. ANORO ELLIPTA [Concomitant]
     Active Substance: UMECLIDINIUM BROMIDE\VILANTEROL TRIFENATATE
  12. NICOTINE [Concomitant]
     Active Substance: NICOTINE
     Dosage: UNK, QD

REACTIONS (2)
  - Impaired quality of life [Unknown]
  - Drug ineffective [Unknown]
